FAERS Safety Report 15643610 (Version 3)
Quarter: 2018Q4

REPORT INFORMATION
  Report Type: Spontaneous
  Country: US (occurrence: US)
  Receive Date: 20181121
  Receipt Date: 20181228
  Transmission Date: 20190205
  Serious: Yes (Life-Threatening, Hospitalization, Other)
  Sender: FDA-Public Use
  Company Number: US-PFIZER INC-2018472139

PATIENT
  Age: 30 Year
  Sex: Female
  Weight: 69 kg

DRUGS (2)
  1. PROPOFOL. [Concomitant]
     Active Substance: PROPOFOL
     Indication: GENERAL ANAESTHESIA
     Dosage: UNK
     Route: 040
  2. ADRENALINE [Suspect]
     Active Substance: EPINEPHRINE
     Indication: LOCAL ANAESTHESIA
     Dosage: INJECTED 9 MG OF 1:1000 EPINEPHRINE ERRONEOUSLY

REACTIONS (5)
  - Wrong product administered [Recovered/Resolved]
  - Heart rate increased [Recovered/Resolved]
  - Incorrect route of product administration [Recovered/Resolved]
  - Electrocardiogram ST segment depression [Recovered/Resolved]
  - Blood pressure increased [Recovered/Resolved]
